FAERS Safety Report 6541766-4 (Version None)
Quarter: 2010Q1

REPORT INFORMATION
  Report Type: 
  Country: None (occurrence: None)
  Receive Date: 20100119
  Receipt Date: 20100113
  Transmission Date: 20100710
  Serious: Yes (Death, Life-Threatening, Hospitalization)
  Sender: FDA-Public Use
  Company Number: JP-BAYER-200913486BYL

PATIENT
  Sex: Male
  Weight: 62 kg

DRUGS (10)
  1. NEXAVAR [Suspect]
     Indication: HEPATIC NEOPLASM MALIGNANT
     Dosage: TOTAL DAILY DOSE: 800 MG  UNIT DOSE: 200 MG
     Route: 048
     Dates: start: 20090908, end: 20090917
  2. NEXAVAR [Suspect]
     Dosage: UNIT DOSE: 200 MG
     Route: 048
     Dates: start: 20090918, end: 20091113
  3. LENDORMIN [Concomitant]
     Indication: INSOMNIA
     Dosage: BEFORE NEXAVAR ADMINISTRATION
     Route: 048
  4. LAC B [Concomitant]
     Indication: GASTRIC OPERATION
     Dosage: BEFORE NEXAVAR ADMINISTRATION
     Route: 048
  5. TAKEPRON [Concomitant]
     Indication: PROPHYLAXIS AGAINST GASTROINTESTINAL ULCER
     Dosage: BEFORE NEXAVAR ADMINISTRATION
     Route: 048
  6. MOHRUS TAPE [Concomitant]
     Indication: PAIN
     Dosage: BEFORE NEXAVAR ADMINISTRATION
     Route: 062
  7. SELBEX [Concomitant]
     Indication: PROPHYLAXIS AGAINST GASTROINTESTINAL ULCER
     Dosage: BEFORE NEXAVAR ADMINISTRATION
     Route: 048
  8. PANSPORIN T [Concomitant]
     Indication: THERAPEUTIC RESPONSE PROLONGED
     Dosage: BEFORE NEXAVAR ADMINISTRATION
     Route: 048
  9. BERIZYM [Concomitant]
     Indication: GASTRIC OPERATION
     Dosage: BEFORE NEXAVAR ADMINISTRATION
     Route: 048
  10. LOXONIN [Concomitant]
     Indication: PAIN
     Dosage: BEFORE NEXAVAR ADMINISTRATION
     Route: 048

REACTIONS (6)
  - GASTROINTESTINAL HAEMORRHAGE [None]
  - HAEMOGLOBIN DECREASED [None]
  - HEPATIC FAILURE [None]
  - INTRA-ABDOMINAL HAEMORRHAGE [None]
  - RED BLOOD CELL COUNT DECREASED [None]
  - RENAL FAILURE [None]
